FAERS Safety Report 4517533-X (Version None)
Quarter: 2005Q1

REPORT INFORMATION
  Report Type: 
  Country: None (occurrence: None)
  Receive Date: 20041027
  Receipt Date: 20040819
  Transmission Date: 20050727
  Serious: No
  Sender: FDA-Public Use
  Company Number: US088101

PATIENT
  Age: 38 Year
  Sex: Male

DRUGS (6)
  1. SENSIPAR [Suspect]
     Indication: HYPERPARATHYROIDISM SECONDARY
     Dosage: 30 MG, 1 IN 1 DAYS, PO
     Route: 047
     Dates: start: 20040520
  2. RAMIPRIL [Concomitant]
  3. ROPINIROLE HCL [Concomitant]
  4. SEVELAMER HCL [Concomitant]
  5. PARICALCITOL [Concomitant]
  6. EPOGEN [Concomitant]

REACTIONS (1)
  - THERAPEUTIC RESPONSE DECREASED [None]
